FAERS Safety Report 24657667 (Version 2)
Quarter: 2025Q2

REPORT INFORMATION
  Report Type: Spontaneous
  Country: JP (occurrence: JP)
  Receive Date: 20241125
  Receipt Date: 20250429
  Transmission Date: 20250717
  Serious: Yes (Death, Hospitalization, Other)
  Sender: GLAXOSMITHKLINE
  Company Number: JP-GSK-JP2024JPN144076

PATIENT

DRUGS (1)
  1. VALTREX [Suspect]
     Active Substance: VALACYCLOVIR HYDROCHLORIDE
     Indication: Herpes zoster

REACTIONS (6)
  - Death [Fatal]
  - Altered state of consciousness [Recovering/Resolving]
  - Cholecystitis acute [Unknown]
  - Peritonitis [Recovering/Resolving]
  - Jaundice [Unknown]
  - Pyrexia [Unknown]
